FAERS Safety Report 25685853 (Version 1)
Quarter: 2025Q3

REPORT INFORMATION
  Report Type: Spontaneous
  Country: SG (occurrence: SG)
  Receive Date: 20250815
  Receipt Date: 20250815
  Transmission Date: 20251021
  Serious: Yes (Hospitalization)
  Sender: STRIDES
  Company Number: SG-STRIDES ARCOLAB LIMITED-2025SP010341

PATIENT
  Age: 57 Year
  Sex: Female

DRUGS (3)
  1. CINACALCET [Suspect]
     Active Substance: CINACALCET
     Indication: Hypercalcaemia
     Route: 065
  2. CALCITONIN [Suspect]
     Active Substance: CALCITONIN
     Indication: Hypercalcaemia
     Route: 065
  3. DENOSUMAB [Suspect]
     Active Substance: DENOSUMAB
     Indication: Hypercalcaemia
     Route: 065

REACTIONS (4)
  - Eastern Cooperative Oncology Group performance status worsened [Unknown]
  - Arrhythmia [Unknown]
  - Nephrocalcinosis [Unknown]
  - Therapy non-responder [Unknown]
